FAERS Safety Report 21405844 (Version 1)
Quarter: 2022Q4

REPORT INFORMATION
  Report Type: Spontaneous
  Country: CA (occurrence: CA)
  Receive Date: 20221004
  Receipt Date: 20221004
  Transmission Date: 20230112
  Serious: Yes (Hospitalization, Other)
  Sender: FDA-Public Use
  Company Number: CA-AUROBINDO-AUR-APL-2022-017958

PATIENT
  Age: 6 Day
  Sex: Female
  Weight: 2.39 kg

DRUGS (13)
  1. AMPICILLIN [Suspect]
     Active Substance: AMPICILLIN
     Indication: Premature labour
     Dosage: UNK
     Route: 064
  2. BETAMETHASONE [Suspect]
     Active Substance: BETAMETHASONE
     Indication: Premature labour
     Dosage: UNK
     Route: 064
  3. GENTAMICIN [Suspect]
     Active Substance: GENTAMICIN
     Indication: Premature labour
     Dosage: UNK
     Route: 064
  4. DEXAMETHASONE [Concomitant]
     Active Substance: DEXAMETHASONE
     Indication: COVID-19
     Dosage: 0.15 MILLIGRAM/KILOGRAM, ONCE A DAY
     Route: 064
  5. DEXAMETHASONE [Concomitant]
     Active Substance: DEXAMETHASONE
     Dosage: 0.5 MILLIGRAM/KILOGRAM, ONCE A DAY
     Route: 064
  6. DEXAMETHASONE [Concomitant]
     Active Substance: DEXAMETHASONE
     Dosage: 0.15 MILLIGRAM/KILOGRAM, TWO TIMES A DAY
     Route: 064
  7. DEXTROSE [Concomitant]
     Active Substance: DEXTROSE
     Indication: Product used for unknown indication
     Dosage: UNK
     Route: 064
  8. MIDAZOLAM [Concomitant]
     Active Substance: MIDAZOLAM
     Indication: Sedation
     Dosage: UNK
     Route: 064
  9. MORPHINE [Concomitant]
     Active Substance: MORPHINE
     Indication: Sedation
     Dosage: UNK
     Route: 064
  10. ROCURONIUM [Concomitant]
     Active Substance: ROCURONIUM BROMIDE
     Indication: Muscle relaxant therapy
     Dosage: UNK
     Route: 064
  11. REMDESIVIR [Concomitant]
     Active Substance: REMDESIVIR
     Indication: COVID-19
     Dosage: 2.5 MILLIGRAM/KILOGRAM (LOADING DOSE)
     Route: 064
  12. REMDESIVIR [Concomitant]
     Active Substance: REMDESIVIR
     Dosage: 1.25 MILLIGRAM/KILOGRAM, ONCE A DAY
     Route: 064
  13. TOBRAMYCIN [Concomitant]
     Active Substance: TOBRAMYCIN
     Indication: Product used for unknown indication
     Dosage: UNK
     Route: 064

REACTIONS (5)
  - Neonatal respiratory failure [Unknown]
  - Foetal exposure during pregnancy [Unknown]
  - COVID-19 [Unknown]
  - Low birth weight baby [Unknown]
  - Premature baby [Unknown]
